FAERS Safety Report 6321078-4 (Version None)
Quarter: 2009Q3

REPORT INFORMATION
  Report Type: 
  Country: None (occurrence: None)
  Receive Date: 20090822
  Receipt Date: 20081230
  Transmission Date: 20100115
  Serious: No
  Sender: FDA-Public Use
  Company Number: US-ABBOTT-09P-163-0495581-00

PATIENT
  Sex: Male
  Weight: 107.14 kg

DRUGS (3)
  1. NIASPAN [Suspect]
     Indication: BLOOD CHOLESTEROL INCREASED
     Route: 048
     Dates: start: 20081101, end: 20081222
  2. ANDROGEL [Suspect]
     Indication: KLINEFELTER'S SYNDROME
     Dates: start: 20081101
  3. CRESTOR [Concomitant]
     Indication: BLOOD CHOLESTEROL INCREASED

REACTIONS (2)
  - FEELING HOT [None]
  - PRURITUS [None]
